FAERS Safety Report 9024684 (Version 2)
Quarter: 2013Q1

REPORT INFORMATION
  Report Type: Spontaneous
  Country: US (occurrence: US)
  Receive Date: 20130121
  Receipt Date: 20130211
  Transmission Date: 20140127
  Serious: Yes (Death)
  Sender: FDA-Public Use
  Company Number: US-BIOGENIDEC-2013BI004243

PATIENT
  Age: 47 Year
  Sex: Female

DRUGS (9)
  1. TYSABRI [Suspect]
     Indication: MULTIPLE SCLEROSIS
     Route: 042
     Dates: start: 20100514, end: 20121128
  2. MAXALT [Concomitant]
  3. BUSPIRONE [Concomitant]
  4. CELEBREX [Concomitant]
  5. FLUOXETINE [Concomitant]
  6. LISINOPRIL [Concomitant]
  7. METOPROLOL SUCCINATE [Concomitant]
  8. NEURONTIN [Concomitant]
  9. TRAZADONE [Concomitant]

REACTIONS (1)
  - Cardiac arrest [Fatal]
